FAERS Safety Report 20630598 (Version 1)
Quarter: 2022Q1

REPORT INFORMATION
  Report Type: Report from Study
  Country: GB (occurrence: GB)
  Receive Date: 20220324
  Receipt Date: 20220324
  Transmission Date: 20220423
  Serious: Yes (Hospitalization)
  Sender: FDA-Public Use
  Company Number: GB-TEVA-2022-GB-2019357

PATIENT
  Sex: Male

DRUGS (1)
  1. OCTREOTIDE [Suspect]
     Active Substance: OCTREOTIDE
     Dosage: DATE OF LAST ADMINISTRATION: 14/02/2022
     Route: 065

REACTIONS (3)
  - Peripheral swelling [Recovering/Resolving]
  - Localised infection [Recovering/Resolving]
  - Product dose omission issue [Unknown]
